FAERS Safety Report 15155159 (Version 2)
Quarter: 2018Q3

REPORT INFORMATION
  Report Type: Spontaneous
  Country: JP (occurrence: JP)
  Receive Date: 20180717
  Receipt Date: 20180727
  Transmission Date: 20181010
  Serious: Yes (Death, Other)
  Sender: FDA-Public Use
  Company Number: JP-MITSUBISHI TANABE PHARMA CORPORATION-MTPC2018-0016088

PATIENT
  Age: 84 Year
  Sex: Female

DRUGS (11)
  1. VANCOMYCIN HYDROCHLORIDE. [Suspect]
     Active Substance: VANCOMYCIN HYDROCHLORIDE
     Indication: STAPHYLOCOCCAL BACTERAEMIA
     Route: 065
  2. SPIRONOLACTONE. [Suspect]
     Active Substance: SPIRONOLACTONE
     Indication: CARDIAC FAILURE CONGESTIVE
     Route: 048
  3. CEFAZOLIN SODIUM. [Suspect]
     Active Substance: CEFAZOLIN SODIUM
     Indication: STAPHYLOCOCCAL BACTERAEMIA
     Dosage: 2 G, 3 TIMES/DAY
     Route: 065
  4. TEICOPLANIN [Suspect]
     Active Substance: TEICOPLANIN
     Indication: STAPHYLOCOCCAL BACTERAEMIA
     Route: 065
  5. AZOSEMIDE [Suspect]
     Active Substance: AZOSEMIDE
     Indication: CARDIAC FAILURE CONGESTIVE
     Route: 048
  6. HANP [Suspect]
     Active Substance: CARPERITIDE
     Indication: CARDIAC FAILURE CONGESTIVE
     Route: 065
  7. DAPTOMYCIN. [Suspect]
     Active Substance: DAPTOMYCIN
     Indication: STAPHYLOCOCCAL BACTERAEMIA
     Route: 065
  8. SAMSCA [Suspect]
     Active Substance: TOLVAPTAN
     Indication: CARDIAC FAILURE CONGESTIVE
     Route: 048
  9. EDARAVONE [Suspect]
     Active Substance: EDARAVONE
     Indication: THROMBOTIC CEREBRAL INFARCTION
     Route: 065
  10. ARGATROBAN. [Suspect]
     Active Substance: ARGATROBAN
     Indication: THROMBOTIC CEREBRAL INFARCTION
     Route: 065
  11. VANCOMYCIN HYDROCHLORIDE. [Suspect]
     Active Substance: VANCOMYCIN HYDROCHLORIDE
     Route: 065

REACTIONS (4)
  - Staphylococcal bacteraemia [Fatal]
  - Endocarditis [Fatal]
  - Septic shock [Recovered/Resolved]
  - Cerebral infarction [Fatal]
